FAERS Safety Report 20542558 (Version 1)
Quarter: 2022Q1

REPORT INFORMATION
  Report Type: Spontaneous
  Country: US (occurrence: US)
  Receive Date: 20220302
  Receipt Date: 20220302
  Transmission Date: 20220424
  Serious: Yes (Hospitalization, Other)
  Sender: FDA-Public Use
  Company Number: US-OTSUKA-2022_009646

PATIENT
  Sex: Male

DRUGS (1)
  1. ARIPIPRAZOLE [Suspect]
     Active Substance: ARIPIPRAZOLE
     Indication: Autism spectrum disorder
     Dosage: UNK
     Route: 065

REACTIONS (4)
  - Suicide threat [Unknown]
  - Obsessive thoughts [Unknown]
  - Aggression [Recovered/Resolved]
  - Product use in unapproved indication [Unknown]
